FAERS Safety Report 9253084 (Version 1)
Quarter: 2013Q2

REPORT INFORMATION
  Report Type: Spontaneous
  Country: US (occurrence: US)
  Receive Date: 20130424
  Receipt Date: 20130424
  Transmission Date: 20140414
  Serious: No
  Sender: FDA-Public Use
  Company Number: US-PFIZER INC-2013125042

PATIENT
  Sex: Female

DRUGS (1)
  1. CORGARD [Suspect]
     Dosage: 40 MG, UNK

REACTIONS (3)
  - Blood pressure inadequately controlled [Unknown]
  - Palpitations [Unknown]
  - Medication error [Unknown]
